FAERS Safety Report 10177397 (Version 1)
Quarter: 2014Q2

REPORT INFORMATION
  Report Type: Spontaneous
  Country: US (occurrence: US)
  Receive Date: 20140516
  Receipt Date: 20140516
  Transmission Date: 20141212
  Serious: Yes (Other)
  Sender: FDA-Public Use
  Company Number: US-BRISTOL-MYERS SQUIBB COMPANY-20725230

PATIENT
  Age: 66 Year
  Sex: Male

DRUGS (6)
  1. KOMBIGLYZE XR [Suspect]
     Dosage: 1 DF = 2.5/1000 UNITS NOS.
     Dates: start: 20140114, end: 20140506
  2. CARVEDILOL [Concomitant]
  3. ALTACE [Concomitant]
  4. CRESTOR [Concomitant]
  5. ALBUTEROL [Concomitant]
  6. LANTUS [Concomitant]

REACTIONS (1)
  - Cardiac failure congestive [Unknown]
